FAERS Safety Report 6750466 (Version 2)
Quarter: 2020Q3

REPORT INFORMATION
  Report Type: Spontaneous
  Country: US (occurrence: GR)
  Receive Date: 20080908
  Receipt Date: 20080918
  Transmission Date: 20201105
  Serious: Yes (Other)
  Sender: FDA-Public Use
  Company Number: US-ROCHE-583551

PATIENT
  Age: 78 Year
  Sex: Female

DRUGS (6)
  1. IBANDRONIC ACID. [Suspect]
     Active Substance: IBANDRONIC ACID
     Dosage: DOSE; 6 MG IN 15 MINUTES. PATIENT RECEIVED SINGLE DOSE OF IV IBANDRONIC ACID
     Route: 042
     Dates: start: 200503, end: 200503
  2. NAVELBINE [Suspect]
     Active Substance: VINORELBINE TARTRATE
     Indication: DISEASE PROGRESSION
     Dosage: DOSE: 60 MG/M2 WEEKLY
     Route: 048
  3. MEGACE [Suspect]
     Active Substance: MEGESTROL ACETATE
     Indication: DISEASE PROGRESSION
     Route: 065
     Dates: start: 200611
  4. IBANDRONIC ACID. [Suspect]
     Active Substance: IBANDRONIC ACID
     Route: 048
  5. DOXORUBICIN [Suspect]
     Active Substance: DOXORUBICIN
     Indication: DISEASE PROGRESSION
     Route: 042
  6. IBANDRONIC ACID. [Suspect]
     Active Substance: IBANDRONIC ACID
     Route: 048
     Dates: end: 200707

REACTIONS (3)
  - Breast cancer [Unknown]
  - Gastric disorder [Unknown]
  - Osteonecrosis [Recovering/Resolving]
